FAERS Safety Report 12630081 (Version 1)
Quarter: 2016Q3

REPORT INFORMATION
  Report Type: Report from Study
  Country: US (occurrence: US)
  Receive Date: 20160808
  Receipt Date: 20160808
  Transmission Date: 20161109
  Serious: Yes (Death, Other)
  Sender: FDA-Public Use
  Company Number: US-PFIZER INC-2016368912

PATIENT
  Age: 85 Year
  Sex: Female

DRUGS (1)
  1. DOBUTAMINE HCL [Suspect]
     Active Substance: DOBUTAMINE HYDROCHLORIDE
     Dosage: UNK

REACTIONS (5)
  - Respiratory distress [Fatal]
  - Pulmonary oedema [Fatal]
  - Left ventricle outflow tract obstruction [Fatal]
  - Stress cardiomyopathy [Unknown]
  - Pulseless electrical activity [Fatal]
